FAERS Safety Report 7917001-9 (Version None)
Quarter: 2011Q4

REPORT INFORMATION
  Report Type: 
  Country: None (occurrence: None)
  Receive Date: 20111116
  Receipt Date: 20111116
  Transmission Date: 20120403
  Serious: Yes (Other)
  Sender: FDA-Public Use
  Company Number: None

PATIENT
  Age: 46 Year
  Sex: Female
  Weight: 81.646 kg

DRUGS (1)
  1. MONISTAT 3 [Suspect]
     Indication: FUNGAL INFECTION
     Dosage: 1 TUBE
     Route: 067
     Dates: start: 20101108, end: 20101108

REACTIONS (4)
  - SCREAMING [None]
  - APPLICATION SITE PAIN [None]
  - CRYING [None]
  - APPLICATION SITE PRURITUS [None]
